FAERS Safety Report 12329557 (Version 2)
Quarter: 2016Q3

REPORT INFORMATION
  Report Type: Report from Study
  Country: CL (occurrence: CL)
  Receive Date: 20160503
  Receipt Date: 20160701
  Transmission Date: 20161109
  Serious: Yes (Hospitalization)
  Sender: FDA-Public Use
  Company Number: PHHY2016CL045817

PATIENT
  Age: 12 Year
  Sex: Female
  Weight: 43 kg

DRUGS (1)
  1. OMNITROPE [Suspect]
     Active Substance: SOMATROPIN
     Indication: PRODUCT USED FOR UNKNOWN INDICATION
     Dosage: 1.4 MG, QD
     Route: 065
     Dates: start: 20160320, end: 20160518

REACTIONS (7)
  - Arthralgia [Recovering/Resolving]
  - Dizziness [Unknown]
  - Injection site erythema [Unknown]
  - Pain [Unknown]
  - Abdominal infection [Unknown]
  - Adverse event [Unknown]
  - Pain in extremity [Unknown]

NARRATIVE: CASE EVENT DATE: 20160425
